FAERS Safety Report 7178877-9 (Version None)
Quarter: 2010Q4

REPORT INFORMATION
  Report Type: 
  Country: None (occurrence: None)
  Receive Date: 20101221
  Receipt Date: 20101213
  Transmission Date: 20110411
  Serious: Yes (Life-Threatening, Hospitalization)
  Sender: FDA-Public Use
  Company Number: GB-CELGENEUS-167-C5013-10121453

PATIENT
  Sex: Male
  Weight: 58.9 kg

DRUGS (20)
  1. CC-5013 [Suspect]
     Indication: MULTIPLE MYELOMA
     Route: 048
     Dates: start: 20100219
  2. CC-5013 [Suspect]
     Route: 048
     Dates: start: 20101125, end: 20101213
  3. DEXAMETHASONE [Suspect]
     Indication: MULTIPLE MYELOMA
     Route: 065
     Dates: start: 20100219
  4. DEXAMETHASONE [Suspect]
     Route: 065
     Dates: start: 20101125, end: 20101210
  5. ALLOPURINOL [Concomitant]
     Indication: PROPHYLAXIS
     Route: 048
     Dates: start: 20100219
  6. LANSOPRAZOLE [Concomitant]
     Route: 048
     Dates: start: 20070309
  7. LACTULOSE [Concomitant]
     Indication: CONSTIPATION
     Route: 048
     Dates: start: 20060912
  8. SIMVASTATIN [Concomitant]
     Route: 048
     Dates: start: 20070222
  9. TAMSULOSIN [Concomitant]
     Route: 048
     Dates: start: 20080102
  10. COTRIM [Concomitant]
     Indication: INFECTION PROPHYLAXIS
     Route: 048
     Dates: start: 20060219
  11. GLICAZIDE [Concomitant]
     Route: 048
     Dates: start: 20031027
  12. METFORMIN [Concomitant]
     Route: 048
     Dates: start: 20060925
  13. ADCAL [Concomitant]
     Indication: OSTEOPOROSIS PROPHYLAXIS
     Route: 048
     Dates: start: 20090701
  14. CLODRONATE DISODIUM [Concomitant]
     Indication: OSTEOPOROSIS PROPHYLAXIS
     Route: 048
     Dates: start: 20100122
  15. FINASTERIDE [Concomitant]
     Route: 048
     Dates: start: 20080102
  16. TRAVATAN [Concomitant]
     Indication: GLAUCOMA
     Route: 047
     Dates: start: 20040112
  17. TIMOLOL [Concomitant]
     Indication: GLAUCOMA
     Route: 047
     Dates: start: 20090203
  18. TRUSOPT [Concomitant]
     Indication: GLAUCOMA
     Route: 047
     Dates: start: 20090305
  19. ASPIRIN [Concomitant]
     Indication: PROPHYLAXIS
     Route: 048
     Dates: start: 20100604
  20. FENTANYL-100 [Concomitant]
     Route: 062
     Dates: start: 20100610

REACTIONS (2)
  - NEUTROPENIC SEPSIS [None]
  - RESPIRATORY FAILURE [None]
